FAERS Safety Report 23358850 (Version 1)
Quarter: 2024Q1

REPORT INFORMATION
  Report Type: Spontaneous
  Country: IN (occurrence: IN)
  Receive Date: 20240102
  Receipt Date: 20240102
  Transmission Date: 20240410
  Serious: Yes (Death, Other)
  Sender: FDA-Public Use
  Company Number: IN-PFIZER INC-202300452383

PATIENT
  Sex: Male

DRUGS (2)
  1. INOTUZUMAB OZOGAMICIN [Suspect]
     Active Substance: INOTUZUMAB OZOGAMICIN
     Indication: Acute lymphocytic leukaemia
  2. HYPER CVAD [CYCLOPHOSPHAMIDE;CYTARABINE;DEXAMETHASONE;DOXORUBICIN;FOLI [Concomitant]

REACTIONS (2)
  - Death [Fatal]
  - Venoocclusive disease [Unknown]
